FAERS Safety Report 14141154 (Version 1)
Quarter: 2017Q4

REPORT INFORMATION
  Report Type: Spontaneous
  Country: US (occurrence: None)
  Receive Date: 20171028
  Receipt Date: 20171028
  Transmission Date: 20180321
  Serious: No
  Sender: FDA-Public Use
  Company Number: None

PATIENT
  Age: 70 Year
  Sex: Male
  Weight: 89 kg

DRUGS (6)
  1. RITUXIMAB (MOAB C2B8 ANTI CD20, CHIMERIC) [Suspect]
     Active Substance: RITUXIMAB
     Dates: end: 20131205
  2. PREDNISONE. [Suspect]
     Active Substance: PREDNISONE
     Dates: end: 20091031
  3. BEXXAR [Suspect]
     Active Substance: TOSITUMOMAB I-131
     Dosage: TOTAL DOSE ADMINISTERED - 82 MCI
     Dates: end: 20091209
  4. CYCLOPHOSPHAMIDE. [Suspect]
     Active Substance: CYCLOPHOSPHAMIDE
     Dates: end: 20091027
  5. DOXORUBICIN HYDROCHLORIDE. [Suspect]
     Active Substance: DOXORUBICIN HYDROCHLORIDE
     Dates: end: 20091027
  6. VINCRISTINE SULFATE. [Suspect]
     Active Substance: VINCRISTINE SULFATE
     Dates: end: 20091027

REACTIONS (1)
  - Leukaemia [None]

NARRATIVE: CASE EVENT DATE: 20171017
